FAERS Safety Report 13428303 (Version 4)
Quarter: 2017Q2

REPORT INFORMATION
  Report Type: Spontaneous
  Country: IT (occurrence: IT)
  Receive Date: 20170411
  Receipt Date: 20170427
  Transmission Date: 20170830
  Serious: Yes (Other)
  Sender: FDA-Public Use
  Company Number: IT-PFIZER INC-2017152706

PATIENT
  Age: 15 Year
  Sex: Female

DRUGS (3)
  1. SERTRALINE HCL [Suspect]
     Active Substance: SERTRALINE HYDROCHLORIDE
     Dosage: UNK
  2. TRAZODONE [Suspect]
     Active Substance: TRAZODONE HYDROCHLORIDE
     Dosage: UNK
  3. LORAZEPAM. [Suspect]
     Active Substance: LORAZEPAM
     Dosage: UNK

REACTIONS (4)
  - Drug diversion [Unknown]
  - Sopor [Unknown]
  - Drug use disorder [Unknown]
  - Suicide attempt [Unknown]

NARRATIVE: CASE EVENT DATE: 20170220
